FAERS Safety Report 6537993-2 (Version None)
Quarter: 2010Q1

REPORT INFORMATION
  Report Type: 
  Country: None (occurrence: None)
  Receive Date: 20100114
  Receipt Date: 20100108
  Transmission Date: 20100710
  Serious: Yes (Death)
  Sender: FDA-Public Use
  Company Number: US-GILEAD-2010-0026383

PATIENT
  Sex: Male
  Weight: 75.818 kg

DRUGS (11)
  1. LETAIRIS [Suspect]
     Indication: PULMONARY ARTERIAL HYPERTENSION
     Route: 048
     Dates: start: 20090214
  2. LETAIRIS [Suspect]
     Route: 048
  3. FUROSEMIDE [Concomitant]
  4. ASTEPRO [Concomitant]
  5. HYDROXYZINE [Concomitant]
  6. ASPIRIN [Concomitant]
  7. MECLIZINE [Concomitant]
  8. LEXAPRO [Concomitant]
  9. LEVOTHYROXINE SODIUM [Concomitant]
  10. OXYGEN [Concomitant]
  11. POTASSIUM CHLORIDE [Concomitant]

REACTIONS (1)
  - DEATH [None]
